FAERS Safety Report 6541098-4 (Version None)
Quarter: 2010Q1

REPORT INFORMATION
  Report Type: 
  Country: None (occurrence: None)
  Receive Date: 20100118
  Receipt Date: 20100108
  Transmission Date: 20100710
  Serious: Yes (Hospitalization)
  Sender: FDA-Public Use
  Company Number: BE-ROCHE-672090

PATIENT
  Sex: Male
  Weight: 48 kg

DRUGS (1)
  1. ROACCUTANE [Suspect]
     Indication: ACNE
     Dosage: FREQUENCY DAILY
     Route: 048
     Dates: start: 20091012, end: 20091112

REACTIONS (1)
  - URINARY RETENTION [None]
